FAERS Safety Report 7210599-8 (Version None)
Quarter: 2011Q1

REPORT INFORMATION
  Report Type: 
  Country: None (occurrence: None)
  Receive Date: 20110105
  Receipt Date: 20110103
  Transmission Date: 20110831
  Serious: Yes (Hospitalization)
  Sender: FDA-Public Use
  Company Number: CA-ROCHE-751336

PATIENT
  Sex: Male
  Weight: 82 kg

DRUGS (7)
  1. LACTULOSE [Concomitant]
  2. PANTOLOC [Concomitant]
  3. DECADRON [Concomitant]
  4. PROTRIN [Concomitant]
  5. BEVACIZUMAB [Suspect]
     Indication: GLIOBLASTOMA
     Route: 042
     Dates: start: 20101126
  6. COLACE [Concomitant]
  7. SENOKOT [Concomitant]

REACTIONS (2)
  - DIVERTICULITIS [None]
  - PHLEBITIS [None]
